FAERS Safety Report 7958069-3 (Version None)
Quarter: 2011Q4

REPORT INFORMATION
  Report Type: 
  Country: None (occurrence: None)
  Receive Date: 20111201
  Receipt Date: 20111121
  Transmission Date: 20120403
  Serious: Yes (Life-Threatening)
  Sender: FDA-Public Use
  Company Number: VISP-NO-1111S-0487

PATIENT
  Age: 84 Year
  Sex: Female

DRUGS (2)
  1. VISIPAQUE [Suspect]
     Indication: SPINAL COLUMN INJURY
     Dosage: 100 ML, SINGLE DOSE, INTRAVENOUS
     Route: 042
     Dates: start: 20111111, end: 20111111
  2. VISIPAQUE [Suspect]
     Indication: ANTICOAGULANT THERAPY
     Dosage: 100 ML, SINGLE DOSE, INTRAVENOUS
     Route: 042
     Dates: start: 20111111, end: 20111111

REACTIONS (2)
  - CIRCULATORY COLLAPSE [None]
  - CARDIO-RESPIRATORY ARREST [None]
